FAERS Safety Report 5984927-5 (Version None)
Quarter: 2008Q4

REPORT INFORMATION
  Report Type: 
  Country: None (occurrence: None)
  Receive Date: 20081202
  Receipt Date: 20081121
  Transmission Date: 20090506
  Serious: Yes (Hospitalization, Other)
  Sender: FDA-Public Use
  Company Number: 2008AP003042

PATIENT
  Age: 68 Year
  Sex: Female

DRUGS (1)
  1. TICLOPIDINE HCL [Suspect]
     Dosage: 250 MG; BID

REACTIONS (2)
  - CHOLELITHIASIS [None]
  - HEPATITIS CHOLESTATIC [None]
